FAERS Safety Report 24102786 (Version 1)
Quarter: 2024Q3

REPORT INFORMATION
  Report Type: Spontaneous
  Country: US (occurrence: US)
  Receive Date: 20240717
  Receipt Date: 20240717
  Transmission Date: 20241016
  Serious: No
  Sender: NOVO NORDISK
  Company Number: US-NOVOPROD-1232352

PATIENT
  Age: 71 Year
  Sex: Female

DRUGS (2)
  1. OZEMPIC [Suspect]
     Active Substance: SEMAGLUTIDE
     Indication: Product used for unknown indication
     Dosage: 0.5MG
     Route: 058
     Dates: start: 2022
  2. JARDIANCE [Suspect]
     Active Substance: EMPAGLIFLOZIN
     Indication: Product used for unknown indication
     Dosage: UNK

REACTIONS (4)
  - Hyperhidrosis [Recovered/Resolved]
  - Feeling cold [Recovered/Resolved]
  - Weight increased [Not Recovered/Not Resolved]
  - Blood glucose decreased [Recovered/Resolved]

NARRATIVE: CASE EVENT DATE: 20240401
